FAERS Safety Report 11533209 (Version 1)
Quarter: 2015Q3

REPORT INFORMATION
  Report Type: Report from Study
  Country: US (occurrence: US)
  Receive Date: 20150921
  Receipt Date: 20150921
  Transmission Date: 20151125
  Serious: Yes (Hospitalization)
  Sender: FDA-Public Use
  Company Number: US-RB-014827-10

PATIENT
  Age: 44 Year
  Sex: Female

DRUGS (4)
  1. PAXIL [Concomitant]
     Active Substance: PAROXETINE HYDROCHLORIDE
     Indication: DEPRESSION
     Dosage: UNK
     Route: 048
  2. SUBUTEX [Suspect]
     Active Substance: BUPRENORPHINE HYDROCHLORIDE
     Indication: DRUG DEPENDENCE
     Dosage: 32 MG, QD
     Route: 060
     Dates: start: 2006, end: 20100825
  3. SUBOXONE [Suspect]
     Active Substance: BUPRENORPHINE HYDROCHLORIDE\NALOXONE HYDROCHLORIDE
     Indication: DRUG DEPENDENCE
     Dosage: 8MG, TID (A COUPLE OF WEEKS)
     Route: 060
     Dates: start: 2004, end: 2004
  4. SUBOXONE [Suspect]
     Active Substance: BUPRENORPHINE HYDROCHLORIDE\NALOXONE HYDROCHLORIDE
     Dosage: 40 MG, QD
     Route: 060
     Dates: start: 200603, end: 2006

REACTIONS (6)
  - Hypersensitivity [Recovered/Resolved]
  - Weight increased [Recovered/Resolved]
  - Eye swelling [Recovered/Resolved]
  - Product use issue [Recovered/Resolved]
  - Swelling [Recovered/Resolved]
  - Drug withdrawal syndrome [Not Recovered/Not Resolved]

NARRATIVE: CASE EVENT DATE: 2004
